FAERS Safety Report 17225051 (Version 1)
Quarter: 2019Q4

REPORT INFORMATION
  Report Type: Spontaneous
  Country: US (occurrence: US)
  Receive Date: 20191209
  Receipt Date: 20191209
  Transmission Date: 20200122
  Serious: No
  Sender: FDA-Public Use
  Company Number: None

PATIENT
  Age: 44 Year
  Sex: Male

DRUGS (1)
  1. JAKAFI [Suspect]
     Active Substance: RUXOLITINIB
     Indication: MYELOFIBROSIS
     Dosage: ?          OTHER FREQUENCY:QAM-QPM;?
     Route: 048
     Dates: start: 20190904

REACTIONS (3)
  - Red blood cell count decreased [None]
  - Dyspnoea [None]
  - Fatigue [None]
